FAERS Safety Report 4448074-6 (Version None)
Quarter: 2004Q3

REPORT INFORMATION
  Report Type: 
  Country: None (occurrence: None)
  Receive Date: 20040913
  Receipt Date: 20040902
  Transmission Date: 20050211
  Serious: Yes (Other)
  Sender: FDA-Public Use
  Company Number: PHNU2004DE03097

PATIENT
  Sex: Female

DRUGS (4)
  1. BRISERIN-N [Suspect]
     Indication: HYPERTENSION
     Dosage: 1 DF, ONCE/SINGLE
     Route: 048
     Dates: start: 20040901, end: 20040901
  2. MADOPAR [Suspect]
     Indication: RESTLESS LEGS SYNDROME
     Dosage: 6 TABLETS/D
     Route: 048
     Dates: start: 19920101
  3. TOREM [Concomitant]
     Dates: start: 20040701
  4. TOMAPYRIN C [Concomitant]
     Indication: HEADACHE
     Dosage: 0.5 TABLETS/D
     Route: 048

REACTIONS (6)
  - BLOOD PRESSURE INCREASED [None]
  - DIZZINESS [None]
  - DRUG INTERACTION [None]
  - FATIGUE [None]
  - HEADACHE [None]
  - NAUSEA [None]
